FAERS Safety Report 8834804 (Version 1)
Quarter: 2012Q4

REPORT INFORMATION
  Report Type: 
  Country: US (occurrence: US)
  Receive Date: 20121010
  Receipt Date: 20121010
  Transmission Date: 20130627
  Serious: Yes (Hospitalization)
  Sender: FDA-Public Use
  Company Number: US-GLAXOSMITHKLINE-A0996730A

PATIENT
  Sex: Female

DRUGS (8)
  1. FLOLAN [Suspect]
     Indication: PRODUCT USED FOR UNKNOWN INDICATION
     Dosage: 32.6NGKM Continuous
     Route: 042
     Dates: start: 20021105
  2. BACTRIM [Concomitant]
  3. SENSIPAR [Concomitant]
  4. PRILOSEC [Concomitant]
  5. NEURONTIN [Concomitant]
  6. DIGITEK [Concomitant]
  7. LOMOTIL [Concomitant]
  8. LOMOTIL [Concomitant]

REACTIONS (2)
  - Device related infection [Unknown]
  - Nasopharyngitis [Unknown]
